FAERS Safety Report 10079372 (Version 2)
Quarter: 2014Q2

REPORT INFORMATION
  Report Type: Report from Study
  Country: FR (occurrence: FR)
  Receive Date: 20140415
  Receipt Date: 20140529
  Transmission Date: 20141212
  Serious: Yes (Hospitalization)
  Sender: FDA-Public Use
  Company Number: PHHY2014FR045355

PATIENT
  Age: 12 Year
  Sex: Male
  Weight: 44 kg

DRUGS (3)
  1. ICL670A [Suspect]
     Indication: IRON OVERLOAD
     Dosage: 1750 MG, DAILY
     Route: 048
     Dates: start: 200107, end: 20091101
  2. ORACILLINE [Concomitant]
     Indication: PROPHYLAXIS
     Dosage: 2 MIU, DAILY
  3. FOLIDEN [Concomitant]
     Indication: PROPHYLAXIS
     Dosage: 5 MG, DAILY

REACTIONS (2)
  - Pyrexia [Recovered/Resolved]
  - Headache [Recovered/Resolved]
